FAERS Safety Report 16544536 (Version 3)
Quarter: 2019Q3

REPORT INFORMATION
  Report Type: Report from Study
  Country: IL (occurrence: IL)
  Receive Date: 20190709
  Receipt Date: 20190807
  Transmission Date: 20191004
  Serious: Yes (Hospitalization, Other)
  Sender: FDA-Public Use
  Company Number: PHHY2019IL133147

PATIENT
  Age: 48 Year
  Sex: Female

DRUGS (10)
  1. TAFINLAR [Suspect]
     Active Substance: DABRAFENIB MESYLATE
     Indication: MALIGNANT MELANOMA
     Dosage: 150 MG, BID
     Route: 048
     Dates: start: 20190603
  2. TAFINLAR [Suspect]
     Active Substance: DABRAFENIB MESYLATE
     Dosage: (150MG MORNING AND 75MG EVENING), BID
     Route: 048
     Dates: start: 20190613, end: 20190621
  3. MEKINIST [Suspect]
     Active Substance: TRAMETINIB DIMETHYL SULFOXIDE
     Dosage: 2 MG, QD
     Route: 048
     Dates: start: 20190625, end: 20190727
  4. MEKINIST [Suspect]
     Active Substance: TRAMETINIB DIMETHYL SULFOXIDE
     Indication: MALIGNANT MELANOMA
     Dosage: 2 MG, QD
     Route: 048
     Dates: start: 20190603
  5. MEKINIST [Suspect]
     Active Substance: TRAMETINIB DIMETHYL SULFOXIDE
     Dosage: 2 MG, QD
     Route: 048
     Dates: start: 20190608, end: 20190610
  6. MEKINIST [Suspect]
     Active Substance: TRAMETINIB DIMETHYL SULFOXIDE
     Dosage: 2 MG, QD
     Route: 048
     Dates: start: 20190613, end: 20190621
  7. TAFINLAR [Suspect]
     Active Substance: DABRAFENIB MESYLATE
     Dosage: BID (150MG MORNING AND 75MG EVENING)
     Route: 048
     Dates: start: 20190625, end: 20190727
  8. TAFINLAR [Suspect]
     Active Substance: DABRAFENIB MESYLATE
     Dosage: 150 MG, BID
     Route: 048
     Dates: start: 20190608, end: 20190610
  9. TAFINLAR [Suspect]
     Active Substance: DABRAFENIB MESYLATE
     Dosage: (150MG MORNING AND 75MG EVENING), BID
     Route: 048
     Dates: start: 20190606, end: 20190606
  10. MEKINIST [Suspect]
     Active Substance: TRAMETINIB DIMETHYL SULFOXIDE
     Dosage: 2 MG, QD
     Route: 048
     Dates: start: 20190606, end: 20190606

REACTIONS (12)
  - Pyrexia [Recovered/Resolved]
  - Syncope [Recovered/Resolved]
  - Asthenia [Not Recovered/Not Resolved]
  - Hypotension [Recovering/Resolving]
  - Malignant neoplasm progression [Not Recovered/Not Resolved]
  - Peripheral swelling [Not Recovered/Not Resolved]
  - Hypotension [Recovered/Resolved]
  - Syncope [Recovered/Resolved]
  - Dizziness [Unknown]
  - Pyrexia [Not Recovered/Not Resolved]
  - Malignant melanoma [Not Recovered/Not Resolved]
  - Myalgia [Not Recovered/Not Resolved]

NARRATIVE: CASE EVENT DATE: 20190603
